FAERS Safety Report 4621242-6 (Version None)
Quarter: 2005Q1

REPORT INFORMATION
  Report Type: 
  Country: None (occurrence: None)
  Receive Date: 20050329
  Receipt Date: 20050317
  Transmission Date: 20050727
  Serious: Yes (Death)
  Sender: FDA-Public Use
  Company Number: US-JNJFOC-20050304826

PATIENT
  Sex: Male
  Weight: 73.48 kg

DRUGS (13)
  1. REMICADE [Suspect]
     Route: 042
  2. REMICADE [Suspect]
     Indication: CROHN'S DISEASE
     Route: 042
  3. SEROQUEL [Concomitant]
  4. FEMERON [Concomitant]
  5. ZINC SULFATE [Concomitant]
  6. VERAPAMIL [Concomitant]
  7. HYDROCORT [Concomitant]
     Dosage: 15 MG AM, 5 MG PM
  8. CELEXA [Concomitant]
  9. LOMOTIL [Concomitant]
  10. LOMOTIL [Concomitant]
  11. ALPRAZOLAM [Concomitant]
  12. SERAX [Concomitant]
  13. PRILOSEC [Concomitant]

REACTIONS (1)
  - SUDDEN DEATH [None]
